FAERS Safety Report 22174965 (Version 1)
Quarter: 2023Q2

REPORT INFORMATION
  Report Type: Spontaneous
  Country: DK (occurrence: DK)
  Receive Date: 20230405
  Receipt Date: 20230405
  Transmission Date: 20230722
  Serious: Yes (Life-Threatening, Hospitalization, Other)
  Sender: FDA-Public Use
  Company Number: None

PATIENT
  Age: 78 Year
  Sex: Female
  Weight: 68 kg

DRUGS (7)
  1. ELIQUIS [Suspect]
     Active Substance: APIXABAN
     Indication: Thrombosis prophylaxis
     Dosage: STRENGTH: 2.5 MG
     Route: 048
     Dates: start: 20201113, end: 20230320
  2. FLUOXETINE [Concomitant]
     Active Substance: FLUOXETINE HYDROCHLORIDE
     Indication: Depression
     Dates: start: 20201115
  3. ORAMORPH SR SUSTAINED RELEASE [Concomitant]
     Active Substance: MORPHINE SULFATE
     Indication: Pain
     Dosage: STRENGTH: 20 MG/ML
     Dates: start: 20221223
  4. QUETIAPINE [Concomitant]
     Active Substance: QUETIAPINE
     Indication: Depression
     Dates: start: 20190912
  5. ATORVASTATIN [Concomitant]
     Active Substance: ATORVASTATIN
     Indication: Hypercholesterolaemia
     Dates: start: 20210325
  6. CARVEDILOL [Concomitant]
     Active Substance: CARVEDILOL
     Indication: Cardiac failure
     Dates: start: 20201002
  7. LOSARTAN [Concomitant]
     Active Substance: LOSARTAN
     Indication: Hypertension
     Dates: start: 20220331, end: 20230328

REACTIONS (7)
  - Subarachnoid haemorrhage [Unknown]
  - Headache [Unknown]
  - Disturbance in attention [Not Recovered/Not Resolved]
  - Disorientation [Unknown]
  - Haematoma [Unknown]
  - Balance disorder [Not Recovered/Not Resolved]
  - Subdural haematoma [Recovered/Resolved with Sequelae]

NARRATIVE: CASE EVENT DATE: 20230301
